FAERS Safety Report 9177608 (Version 1)
Quarter: 2012Q4

REPORT INFORMATION
  Report Type: 
  Country: US (occurrence: US)
  Receive Date: 20121003
  Receipt Date: 20121003
  Transmission Date: 20130627
  Serious: Yes (Other)
  Sender: FDA-Public Use
  Company Number: US-RB-045119-12

PATIENT
  Sex: Female

DRUGS (5)
  1. SUBOXONE UNSPECIFIED [Suspect]
     Route: 060
     Dates: start: 2007, end: 201007
  2. SUBOXONE UNSPECIFIED [Suspect]
     Route: 060
     Dates: start: 201007, end: 201008
  3. SUBOXONE UNSPECIFIED [Suspect]
     Indication: DRUG DEPENDENCE
     Route: 060
     Dates: start: 201008, end: 201008
  4. SUBOXONE UNSPECIFIED [Suspect]
     Route: 060
     Dates: start: 201010
  5. SUBUTEX [Suspect]
     Indication: DRUG DEPENDENCE
     Route: 060
     Dates: start: 20100913, end: 201010

REACTIONS (2)
  - Abortion spontaneous [Recovered/Resolved]
  - Exposure during pregnancy [Recovered/Resolved]
